FAERS Safety Report 7347465-3 (Version None)
Quarter: 2011Q1

REPORT INFORMATION
  Report Type: 
  Country: None (occurrence: None)
  Receive Date: 20110311
  Receipt Date: 20110301
  Transmission Date: 20110831
  Serious: Yes (Other)
  Sender: FDA-Public Use
  Company Number: RO-GENENTECH-292762

PATIENT
  Sex: Female
  Weight: 94 kg

DRUGS (14)
  1. PREDUCTAL [Concomitant]
     Indication: CORONARY ARTERY DISEASE
     Dosage: UNK
     Dates: start: 20030630
  2. PREDNISONE TAB [Concomitant]
     Indication: PRODUCT USED FOR UNKNOWN INDICATION
     Dosage: UNK
     Dates: start: 20050815
  3. TERTENSIF [Concomitant]
     Indication: HYPERTENSION
     Dosage: UNK
     Dates: start: 20030630
  4. BLINDED PLACEBO [Suspect]
     Indication: RHEUMATOID ARTHRITIS
     Dosage: UNK
     Route: 042
     Dates: start: 20060927
  5. RITUXIMAB [Suspect]
     Dosage: UNK
     Route: 042
     Dates: start: 20100127
  6. METHOTREXATE [Suspect]
     Route: 065
  7. FOLIC ACID [Concomitant]
     Indication: PRODUCT USED FOR UNKNOWN INDICATION
     Dosage: UNK
     Dates: start: 20050815
  8. BLINDED RITUXIMAB [Suspect]
     Indication: RHEUMATOID ARTHRITIS
     Dosage: UNK
     Route: 042
     Dates: start: 20060927
  9. RITUXIMAB [Suspect]
     Indication: RHEUMATOID ARTHRITIS
     Dosage: 1000 MG, UNK
     Route: 042
     Dates: end: 20091002
  10. ALFACALCIDOL [Concomitant]
     Indication: OSTEOPOROSIS
     Dosage: UNK
     Dates: start: 20050815
  11. METHOTREXATE [Suspect]
     Indication: RHEUMATOID ARTHRITIS
     Dosage: 10 MG, 1/WEEK
     Route: 065
     Dates: start: 20050815, end: 20091022
  12. ARCOXIA [Concomitant]
     Indication: PRODUCT USED FOR UNKNOWN INDICATION
     Dosage: UNK
     Dates: start: 20050815
  13. ENAP [Concomitant]
     Indication: HYPERTENSION
     Dosage: UNK
     Dates: start: 20030630
  14. SILIMARIN [Concomitant]
     Indication: PRODUCT USED FOR UNKNOWN INDICATION
     Dosage: UNK
     Dates: start: 20091022

REACTIONS (3)
  - HEPATITIS B DNA INCREASED [None]
  - HEPATITIS B [None]
  - DISEASE RECURRENCE [None]
